FAERS Safety Report 7462493-5 (Version None)
Quarter: 2011Q2

REPORT INFORMATION
  Report Type: 
  Country: None (occurrence: None)
  Receive Date: 20110506
  Receipt Date: 20110427
  Transmission Date: 20111010
  Serious: Yes (Other)
  Sender: FDA-Public Use
  Company Number: FR-BRISTOL-MYERS SQUIBB COMPANY-15616741

PATIENT
  Age: 45 Year
  Sex: Female
  Weight: 50 kg

DRUGS (3)
  1. ATRIPLA [Suspect]
     Indication: HIV INFECTION
     Route: 048
     Dates: start: 20090101
  2. TRUVADA [Suspect]
     Indication: HIV INFECTION
  3. SUSTIVA [Suspect]
     Indication: HIV INFECTION
     Dates: end: 20090101

REACTIONS (1)
  - RENAL COLIC [None]
